FAERS Safety Report 9057505 (Version 1)
Quarter: 2013Q1

REPORT INFORMATION
  Report Type: Spontaneous
  Country: US (occurrence: None)
  Receive Date: 20130204
  Receipt Date: 20130204
  Transmission Date: 20140127
  Serious: No
  Sender: FDA-Public Use
  Company Number: None

PATIENT
  Age: 34 Year
  Sex: Male
  Weight: 99.79 kg

DRUGS (1)
  1. ESCITALOPRAM [Suspect]
     Indication: SOCIAL PHOBIA
     Route: 048
     Dates: start: 20130110, end: 20130123

REACTIONS (7)
  - Hallucination [None]
  - Feeling jittery [None]
  - Agitation [None]
  - Aggression [None]
  - Paranoia [None]
  - Vocal cord disorder [None]
  - Abnormal behaviour [None]
